FAERS Safety Report 13643013 (Version 1)
Quarter: 2017Q2

REPORT INFORMATION
  Report Type: Spontaneous
  Country: PL (occurrence: PL)
  Receive Date: 20170612
  Receipt Date: 20170612
  Transmission Date: 20170830
  Serious: Yes (Other)
  Sender: FDA-Public Use
  Company Number: PL-LHC-2017126

PATIENT
  Age: 58 Year
  Sex: Female

DRUGS (1)
  1. CARBON DIOXIDE (GENERIC) [Suspect]
     Active Substance: CARBON DIOXIDE
     Indication: LAPAROSCOPIC SURGERY

REACTIONS (5)
  - Cardiac arrest [None]
  - Stress cardiomyopathy [None]
  - Bradycardia [None]
  - Electrocardiogram ST segment abnormal [None]
  - Circulatory collapse [Recovered/Resolved]
